FAERS Safety Report 13865755 (Version 2)
Quarter: 2017Q3

REPORT INFORMATION
  Report Type: Spontaneous
  Country: JP (occurrence: JP)
  Receive Date: 20170814
  Receipt Date: 20170906
  Transmission Date: 20171127
  Serious: Yes (Hospitalization, Other)
  Sender: FDA-Public Use
  Company Number: JP-GILEAD-2017-0287085

PATIENT
  Sex: Female

DRUGS (2)
  1. SURULAC PLUS [Concomitant]
  2. HARVONI [Suspect]
     Active Substance: LEDIPASVIR\SOFOSBUVIR
     Indication: HEPATITIS C
     Dosage: UNK
     Route: 065
     Dates: start: 20170307, end: 20170528

REACTIONS (3)
  - Ascites [Unknown]
  - Off label use [Recovered/Resolved]
  - Hepatic encephalopathy [Unknown]

NARRATIVE: CASE EVENT DATE: 2017
